FAERS Safety Report 7029458-9 (Version None)
Quarter: 2010Q4

REPORT INFORMATION
  Report Type: 
  Country: None (occurrence: None)
  Receive Date: 20101005
  Receipt Date: 20100927
  Transmission Date: 20110411
  Serious: Yes (Other)
  Sender: FDA-Public Use
  Company Number: US-AMGEN-QUU438356

PATIENT
  Sex: Male
  Weight: 82.6 kg

DRUGS (3)
  1. NPLATE [Suspect]
     Indication: IDIOPATHIC THROMBOCYTOPENIC PURPURA
     Route: 058
     Dates: start: 20081002, end: 20081024
  2. NEUPOGEN [Concomitant]
     Indication: NEUTROPENIA
     Route: 058
     Dates: start: 20081020, end: 20081021
  3. WINRHO [Concomitant]
     Route: 042
     Dates: start: 20081021

REACTIONS (2)
  - COLOSTOMY CLOSURE [None]
  - DRUG INEFFECTIVE [None]
